FAERS Safety Report 6367303-5 (Version None)
Quarter: 2009Q3

REPORT INFORMATION
  Report Type: 
  Country: None (occurrence: None)
  Receive Date: 20090921
  Receipt Date: 20090908
  Transmission Date: 20100115
  Serious: Yes (Death, Other)
  Sender: FDA-Public Use
  Company Number: US-PFIZER INC-2009222778

PATIENT
  Sex: Male
  Weight: 48.98 kg

DRUGS (5)
  1. CHANTIX [Suspect]
     Indication: SMOKING CESSATION THERAPY
     Dosage: 0.5 MG, 1X/DAY
     Route: 048
     Dates: start: 20080101
  2. CHANTIX [Suspect]
     Dosage: 1 MG, 2X/DAY
     Route: 048
     Dates: end: 20080401
  3. CHANTIX [Suspect]
     Dosage: 1 MG, 2X/DAY
     Dates: start: 20080701
  4. LIPITOR [Concomitant]
     Indication: HYPERCHOLESTEROLAEMIA
     Dosage: 40 MG, 1X/DAY
     Route: 048
     Dates: start: 20080101, end: 20090101
  5. IBUPROFEN [Concomitant]
     Indication: ARTHRITIS
     Dosage: 600 MG, 4X/DAY
     Dates: start: 20080101, end: 20090101

REACTIONS (5)
  - ABNORMAL DREAMS [None]
  - AGITATION [None]
  - BRONCHITIS [None]
  - COMPLETED SUICIDE [None]
  - DEPRESSION [None]
